FAERS Safety Report 7743810-5 (Version None)
Quarter: 2011Q3

REPORT INFORMATION
  Report Type: 
  Country: None (occurrence: None)
  Receive Date: 20110912
  Receipt Date: 20110830
  Transmission Date: 20111222
  Serious: Yes (Death)
  Sender: FDA-Public Use
  Company Number: US-GLAXOSMITHKLINE-A0890949A

PATIENT
  Age: 67 Year
  Sex: Male
  Weight: 96.4 kg

DRUGS (12)
  1. GLUCOPHAGE [Concomitant]
  2. PEPCID [Concomitant]
  3. SIMVASTATIN [Concomitant]
  4. METFORMIN HCL [Concomitant]
  5. NOVOLIN 70/30 [Concomitant]
  6. BUPROPION HCL [Concomitant]
  7. AVANDIA [Suspect]
     Indication: DIABETES MELLITUS
     Route: 048
     Dates: start: 19990101
  8. HUMULIN R [Concomitant]
  9. REZULIN [Concomitant]
  10. VIAGRA [Concomitant]
  11. ORLISTAT [Concomitant]
  12. VARDENAFIL HYDROCHLORIDE (LEVITRA) [Concomitant]

REACTIONS (2)
  - SUDDEN CARDIAC DEATH [None]
  - MYOCARDIAL ISCHAEMIA [None]
